FAERS Safety Report 5831954-4 (Version None)
Quarter: 2008Q3

REPORT INFORMATION
  Report Type: 
  Country: None (occurrence: None)
  Receive Date: 20080729
  Receipt Date: 20080714
  Transmission Date: 20090109
  Serious: Yes (Death, Hospitalization, Other)
  Sender: FDA-Public Use
  Company Number: 2007AP000888

PATIENT
  Age: 75 Year
  Sex: Female

DRUGS (8)
  1. SERTRALINE HYDROCHLORIDE [Suspect]
     Indication: DEPRESSION
     Dosage: 50 MG; BID PO
     Route: 048
  2. CARBAMAZEPINE [Suspect]
     Indication: BIPOLAR DISORDER
     Dosage: 200 MG; BID PO
     Route: 048
  3. PERICIAZINE (PERICIAZINE) [Suspect]
     Indication: BIPOLAR DISORDER
     Dosage: 5 MG; TID, 5 MG; TID
  4. OLANZAPINE [Concomitant]
  5. VENLAFAXINE HCL [Concomitant]
  6. VANCOMYCIN [Concomitant]
  7. CIPROFLOXACIN [Concomitant]
  8. NOREPINEPHRINE BITARTRATE [Concomitant]

REACTIONS (9)
  - ACUTE RESPIRATORY DISTRESS SYNDROME [None]
  - HYPOTENSION [None]
  - HYPOXIA [None]
  - LOBAR PNEUMONIA [None]
  - LUNG INJURY [None]
  - MULTI-ORGAN FAILURE [None]
  - POST PROCEDURAL COMPLICATION [None]
  - PULMONARY OEDEMA [None]
  - RESPIRATORY FAILURE [None]
